FAERS Safety Report 9893682 (Version 1)
Quarter: 2014Q1

REPORT INFORMATION
  Report Type: Spontaneous
  Country: CO (occurrence: CO)
  Receive Date: 20140213
  Receipt Date: 20140213
  Transmission Date: 20141002
  Serious: Yes (Death, Other)
  Sender: FDA-Public Use
  Company Number: CO-PFIZER INC-2014041363

PATIENT
  Age: 89 Year
  Sex: Male

DRUGS (1)
  1. ZOLOFT [Suspect]
     Indication: AMNESIA
     Dosage: 100 MG, 1X/DAY
     Route: 048

REACTIONS (3)
  - Sepsis [Fatal]
  - Brain oedema [Unknown]
  - Spinal disorder [Unknown]
